FAERS Safety Report 21941579 (Version 1)
Quarter: 2023Q1

REPORT INFORMATION
  Report Type: Report from Study
  Country: US (occurrence: US)
  Receive Date: 20230202
  Receipt Date: 20230202
  Transmission Date: 20230418
  Serious: No
  Sender: FDA-Public Use
  Company Number: US-EXELIXIS-CABO-22055135

PATIENT
  Age: 89 Year
  Sex: Male

DRUGS (1)
  1. COMETRIQ [Suspect]
     Active Substance: CABOZANTINIB S-MALATE
     Indication: Thyroid cancer
     Dosage: 140 MG, QD (1 X 80 MG AND 3 X 20 MG)
     Route: 048
     Dates: start: 20220801

REACTIONS (9)
  - Adverse drug reaction [Unknown]
  - Balance disorder [Unknown]
  - Fatigue [Unknown]
  - Dysphonia [Unknown]
  - Constipation [Unknown]
  - Fall [Unknown]
  - Limb injury [Unknown]
  - Contusion [Unknown]
  - Skin atrophy [Unknown]

NARRATIVE: CASE EVENT DATE: 20220801
